FAERS Safety Report 8354720 (Version 11)
Quarter: 2013Q1

REPORT INFORMATION
  Report Type: Report from Study
  Country: FR (occurrence: FR)
  Receive Date: 20120125
  Receipt Date: 20130321
  Transmission Date: 20140127
  Serious: Yes (Other)
  Sender: FDA-Public Use
  Company Number: FR-PFIZER INC-2012014878

PATIENT
  Age: 13 Month
  Sex: Male
  Weight: 11.5 kg

DRUGS (1)
  1. REFACTO AF [Suspect]
     Indication: FACTOR VIII DEFICIENCY
     Dosage: 500 IU ONCE A WEEK
     Route: 042
     Dates: start: 20111125

REACTIONS (1)
  - Factor VIII inhibition [Recovered/Resolved]
